FAERS Safety Report 6282533-9 (Version None)
Quarter: 2009Q3

REPORT INFORMATION
  Report Type: 
  Country: None (occurrence: None)
  Receive Date: 20090724
  Receipt Date: 20090720
  Transmission Date: 20100115
  Serious: Yes (Other)
  Sender: FDA-Public Use
  Company Number: GB-AVENTIS-200917190GDDC

PATIENT
  Age: 73 Year
  Sex: Female
  Weight: 48 kg

DRUGS (9)
  1. LEFLUNOMIDE [Suspect]
     Dosage: DOSE: UNK
  2. ADALAT [Concomitant]
  3. ADCAL-D3 [Concomitant]
     Dosage: DOSE: 1 DOSE
  4. ALENDRONIC ACID [Concomitant]
  5. ASPIRIN [Concomitant]
  6. BENDROFLUMETHIAZIDE [Concomitant]
  7. ACETAMINOPHEN W/ CODEINE [Concomitant]
  8. LATANOPROST [Concomitant]
     Dosage: DOSE: UNK
  9. ACETAMINOPHEN [Concomitant]

REACTIONS (4)
  - DYSPHONIA [None]
  - MALAISE [None]
  - PERIORBITAL OEDEMA [None]
  - RASH [None]
